FAERS Safety Report 8012911-9 (Version None)
Quarter: 2011Q4

REPORT INFORMATION
  Report Type: 
  Country: None (occurrence: None)
  Receive Date: 20111223
  Receipt Date: 20111223
  Transmission Date: 20120403
  Serious: Yes (Hospitalization)
  Sender: FDA-Public Use
  Company Number: None

PATIENT
  Age: 59 Year
  Sex: Male
  Weight: 93.3 kg

DRUGS (1)
  1. ENOXAPARIN [Suspect]
     Indication: DEEP VEIN THROMBOSIS
     Dosage: 130 MG EVERY DAY SQ
     Route: 058
     Dates: start: 20111213, end: 20111214

REACTIONS (4)
  - THROMBOSIS [None]
  - HAEMORRHAGE [None]
  - THROMBOCYTOPENIA [None]
  - HEPARIN-INDUCED THROMBOCYTOPENIA TEST POSITIVE [None]
